FAERS Safety Report 6911320-0 (Version None)
Quarter: 2010Q3

REPORT INFORMATION
  Report Type: 
  Country: None (occurrence: None)
  Receive Date: 20100806
  Receipt Date: 20100729
  Transmission Date: 20110219
  Serious: Yes (Hospitalization)
  Sender: FDA-Public Use
  Company Number: JP-JNJFOC-20100402651

PATIENT
  Age: 8 Decade
  Sex: Male

DRUGS (4)
  1. DUROTEP MT PATCH [Suspect]
     Indication: CANCER PAIN
     Route: 062
  2. DUROTEP MT PATCH [Suspect]
     Route: 062
  3. DUROTEP MT PATCH [Suspect]
     Route: 062
  4. DUROTEP MT PATCH [Suspect]
     Route: 062

REACTIONS (4)
  - DEPRESSED LEVEL OF CONSCIOUSNESS [None]
  - MYOCLONUS [None]
  - OVERDOSE [None]
  - PYREXIA [None]
